FAERS Safety Report 18589953 (Version 1)
Quarter: 2020Q4

REPORT INFORMATION
  Report Type: Spontaneous
  Country: US (occurrence: US)
  Receive Date: 20201205
  Receipt Date: 20201205
  Transmission Date: 20210114
  Serious: Yes (Hospitalization)
  Sender: FDA-Public Use
  Company Number: None

PATIENT
  Age: 56 Year
  Sex: Male
  Weight: 95.6 kg

DRUGS (3)
  1. PROCARBAZINE [Suspect]
     Active Substance: PROCARBAZINE
     Dates: end: 20201108
  2. VINCRISTINE SULFATE. [Suspect]
     Active Substance: VINCRISTINE SULFATE
     Dates: end: 20201028
  3. LOMUSTINE (CCNU) [Suspect]
     Active Substance: LOMUSTINE
     Dates: end: 20201021

REACTIONS (3)
  - Neuropathy peripheral [None]
  - Confusional state [None]
  - COVID-19 [None]

NARRATIVE: CASE EVENT DATE: 20201115
